FAERS Safety Report 23842618 (Version 5)
Quarter: 2025Q1

REPORT INFORMATION
  Report Type: Report from Study
  Country: AU (occurrence: AU)
  Receive Date: 20240510
  Receipt Date: 20250113
  Transmission Date: 20250409
  Serious: Yes (Other)
  Sender: ROCHE
  Company Number: AU-ROCHE-3558734

PATIENT
  Age: 34 Year
  Sex: Male
  Weight: 95 kg

DRUGS (9)
  1. OCREVUS [Suspect]
     Active Substance: OCRELIZUMAB
     Indication: Multiple sclerosis
     Route: 042
     Dates: start: 20231222
  2. OCREVUS [Suspect]
     Active Substance: OCRELIZUMAB
     Route: 042
     Dates: start: 20240627
  3. OCREVUS [Suspect]
     Active Substance: OCRELIZUMAB
     Route: 042
     Dates: start: 2020
  4. LORATADINE [Concomitant]
     Active Substance: LORATADINE
  5. CITALOPRAM [Concomitant]
     Active Substance: CITALOPRAM
  6. OLMESARTAN MEDOXOMIL [Concomitant]
     Active Substance: OLMESARTAN MEDOXOMIL
  7. AMLODIPINE [Concomitant]
     Active Substance: AMLODIPINE BESYLATE
  8. MELATONIN [Concomitant]
     Active Substance: MELATONIN
  9. PREGABALIN [Concomitant]
     Active Substance: PREGABALIN

REACTIONS (7)
  - Pain [Unknown]
  - Mood swings [Unknown]
  - Pain [Unknown]
  - Throat irritation [Recovered/Resolved]
  - Presyncope [Recovered/Resolved]
  - Ear pruritus [Recovered/Resolved]
  - Affective disorder [Unknown]

NARRATIVE: CASE EVENT DATE: 20240503
